FAERS Safety Report 20662912 (Version 1)
Quarter: 2022Q1

REPORT INFORMATION
  Report Type: Spontaneous
  Country: US (occurrence: None)
  Receive Date: 20220331
  Receipt Date: 20220331
  Transmission Date: 20220424
  Serious: Yes (Hospitalization)
  Sender: FDA-Public Use
  Company Number: None

PATIENT
  Age: 62 Year
  Sex: Male

DRUGS (9)
  1. CIMZIA [Suspect]
     Active Substance: CERTOLIZUMAB PEGOL
     Indication: Crohn^s disease
     Dosage: OTHER QUANTITY : 2X200MG/ML;?
     Route: 058
     Dates: start: 20211221
  2. ATORVASTATIN TAB 10MG [Concomitant]
  3. CIMZIA PREFL KIT 200MG/ML [Concomitant]
  4. GLIPIZIDE ER TAB 5MG [Concomitant]
  5. HYDHOCHLOROT CAP 12.5MG [Concomitant]
  6. ACETAMINOPHEN\HYDROCODONE [Concomitant]
     Active Substance: ACETAMINOPHEN\HYDROCODONE
  7. LOSARTAN POT TAB 100MG [Concomitant]
  8. METFORMIN [Concomitant]
     Active Substance: METFORMIN HYDROCHLORIDE
  9. OMEPRAZOLE [Concomitant]
     Active Substance: OMEPRAZOLE

REACTIONS (1)
  - Therapy interrupted [None]

NARRATIVE: CASE EVENT DATE: 20220124
